FAERS Safety Report 19717539 (Version 1)
Quarter: 2021Q3

REPORT INFORMATION
  Report Type: Other
  Country: CN (occurrence: CN)
  Receive Date: 20210818
  Receipt Date: 20210818
  Transmission Date: 20211014
  Serious: Yes (Other)
  Sender: FDA-Public Use
  Company Number: CN-ROCHE-2775033

PATIENT
  Age: 72 Year
  Sex: Female
  Weight: 50 kg

DRUGS (1)
  1. AVASTIN [Suspect]
     Active Substance: BEVACIZUMAB
     Indication: RECTAL CANCER
     Route: 041
     Dates: start: 20170706, end: 20210210

REACTIONS (5)
  - Oedema [Unknown]
  - Renal atrophy [Unknown]
  - White blood cell count decreased [Unknown]
  - Protein urine present [Unknown]
  - Drug resistance [Unknown]
